FAERS Safety Report 12477411 (Version 4)
Quarter: 2016Q3

REPORT INFORMATION
  Report Type: Spontaneous
  Country: US (occurrence: US)
  Receive Date: 20160617
  Receipt Date: 20160920
  Transmission Date: 20161109
  Serious: Yes (Death, Hospitalization, Other)
  Sender: FDA-Public Use
  Company Number: US-JNJFOC-20160610464

PATIENT
  Age: 81 Year
  Sex: Female
  Weight: 86 kg

DRUGS (8)
  1. XARELTO [Suspect]
     Active Substance: RIVAROXABAN
     Indication: CEREBROVASCULAR ACCIDENT PROPHYLAXIS
     Dosage: 15MG-20MG
     Route: 048
     Dates: start: 20140221, end: 20140624
  2. XARELTO [Suspect]
     Active Substance: RIVAROXABAN
     Indication: CEREBROVASCULAR ACCIDENT PROPHYLAXIS
     Route: 048
     Dates: start: 201312, end: 2014
  3. XARELTO [Suspect]
     Active Substance: RIVAROXABAN
     Indication: ATRIAL FIBRILLATION
     Dosage: 15MG-20MG
     Route: 048
     Dates: start: 20140221, end: 20140624
  4. XARELTO [Suspect]
     Active Substance: RIVAROXABAN
     Indication: THROMBOSIS PROPHYLAXIS
     Route: 048
     Dates: start: 201312, end: 2014
  5. XARELTO [Suspect]
     Active Substance: RIVAROXABAN
     Indication: THROMBOSIS PROPHYLAXIS
     Dosage: 15MG-20MG
     Route: 048
     Dates: start: 20140221, end: 20140624
  6. XARELTO [Suspect]
     Active Substance: RIVAROXABAN
     Indication: ATRIAL FIBRILLATION
     Route: 048
     Dates: start: 201312, end: 2014
  7. XARELTO [Suspect]
     Active Substance: RIVAROXABAN
     Indication: THROMBOSIS PROPHYLAXIS
     Dosage: 15MG-20MG
     Route: 048
     Dates: start: 20140221, end: 20140624
  8. XARELTO [Suspect]
     Active Substance: RIVAROXABAN
     Indication: THROMBOSIS PROPHYLAXIS
     Route: 048
     Dates: start: 201312, end: 2014

REACTIONS (5)
  - Cardiac disorder [Fatal]
  - Haemoptysis [Recovering/Resolving]
  - Gastrointestinal haemorrhage [Unknown]
  - Epistaxis [Recovering/Resolving]
  - Arteriosclerosis [Fatal]

NARRATIVE: CASE EVENT DATE: 20140520
